FAERS Safety Report 23310635 (Version 2)
Quarter: 2024Q1

REPORT INFORMATION
  Report Type: Spontaneous
  Country: CA (occurrence: CA)
  Receive Date: 20231218
  Receipt Date: 20240206
  Transmission Date: 20240410
  Serious: Yes (Other)
  Sender: FDA-Public Use
  Company Number: CA-PFIZER INC-202300435775

PATIENT
  Age: 51 Year
  Sex: Male

DRUGS (1)
  1. ENBREL [Suspect]
     Active Substance: ETANERCEPT
     Indication: Rheumatoid arthritis
     Dosage: 1 DOSAGE FORM (1 DF)
     Route: 065

REACTIONS (2)
  - Crohn^s disease [Unknown]
  - Condition aggravated [Unknown]
